APPROVED DRUG PRODUCT: PRIMATENE MIST
Active Ingredient: EPINEPHRINE
Strength: 0.2MG/INH
Dosage Form/Route: AEROSOL, METERED;INHALATION
Application: N016126 | Product #001
Applicant: WYETH CONSUMER HEALTHCARE
Approved: Approved Prior to Jan 1, 1982 | RLD: No | RS: No | Type: DISCN